FAERS Safety Report 6658812-X (Version None)
Quarter: 2010Q1

REPORT INFORMATION
  Report Type: 
  Country: None (occurrence: None)
  Receive Date: 20100330
  Receipt Date: 20100113
  Transmission Date: 20100710
  Serious: Yes (Other)
  Sender: FDA-Public Use
  Company Number: PL-CEPHALON-2010001683

PATIENT
  Sex: Male

DRUGS (2)
  1. TREANDA [Suspect]
     Indication: CHRONIC LYMPHOCYTIC LEUKAEMIA
     Dates: start: 20090601, end: 20090801
  2. RITUXIMAB [Suspect]
     Dates: start: 20090601, end: 20090801

REACTIONS (2)
  - VASCULAR OCCLUSION [None]
  - VENOUS THROMBOSIS [None]
